FAERS Safety Report 16184297 (Version 1)
Quarter: 2019Q2

REPORT INFORMATION
  Report Type: Spontaneous
  Country: US (occurrence: US)
  Receive Date: 20190411
  Receipt Date: 20190411
  Transmission Date: 20190711
  Serious: No
  Sender: FDA-Public Use
  Company Number: US-PFIZER INC-2019149631

PATIENT
  Sex: Female
  Weight: 63.49 kg

DRUGS (1)
  1. LYRICA [Suspect]
     Active Substance: PREGABALIN
     Indication: NEUROPATHY PERIPHERAL
     Dosage: UNK

REACTIONS (6)
  - Migraine [Unknown]
  - Vertigo [Unknown]
  - Withdrawal syndrome [Unknown]
  - Weight decreased [Unknown]
  - Nausea [Unknown]
  - Eye pain [Unknown]
